FAERS Safety Report 8144988-4 (Version None)
Quarter: 2012Q1

REPORT INFORMATION
  Report Type: 
  Country: None (occurrence: None)
  Receive Date: 20120217
  Receipt Date: 20120206
  Transmission Date: 20120608
  Serious: Yes (Other)
  Sender: FDA-Public Use
  Company Number: CHPA2012US001786

PATIENT
  Sex: Female

DRUGS (2)
  1. IMITREX [Suspect]
     Dosage: 50 MG, UNK
     Route: 048
  2. EXCEDRIN (MIGRAINE) [Suspect]
     Indication: MIGRAINE
     Dosage: 2-3, UNK
     Route: 048
     Dates: end: 20120119

REACTIONS (6)
  - THROMBOSIS [None]
  - OVERDOSE [None]
  - COGNITIVE DISORDER [None]
  - UNDERDOSE [None]
  - THERAPEUTIC RESPONSE UNEXPECTED [None]
  - INCORRECT DRUG ADMINISTRATION DURATION [None]
